FAERS Safety Report 4976768-2 (Version None)
Quarter: 2006Q2

REPORT INFORMATION
  Report Type: 
  Country: None (occurrence: None)
  Receive Date: 20060419
  Receipt Date: 20060131
  Transmission Date: 20061013
  Serious: Yes (Other)
  Sender: FDA-Public Use
  Company Number: SE-GLAXOSMITHKLINE-B0409120A

PATIENT
  Sex: Female

DRUGS (6)
  1. LAMICTAL [Suspect]
     Indication: BIPOLAR DISORDER
     Dosage: 25MG PER DAY
     Route: 065
     Dates: start: 20060101, end: 20060101
  2. TRYPTIZOL [Concomitant]
     Dosage: 125MG AS REQUIRED
  3. LITHIONIT [Concomitant]
     Dosage: 3TAB PER DAY
  4. IMOVANE [Concomitant]
     Dosage: 7.5MG PER DAY
  5. LEVAXIN [Concomitant]
  6. LASIX [Concomitant]

REACTIONS (4)
  - COLITIS [None]
  - DIARRHOEA [None]
  - HEADACHE [None]
  - INCREASED UPPER AIRWAY SECRETION [None]
